FAERS Safety Report 21248455 (Version 1)
Quarter: 2022Q3

REPORT INFORMATION
  Report Type: Spontaneous
  Country: US (occurrence: None)
  Receive Date: 20220823
  Receipt Date: 20220823
  Transmission Date: 20221027
  Serious: Yes (Hospitalization)
  Sender: FDA-Public Use
  Company Number: None

PATIENT
  Sex: Male

DRUGS (13)
  1. TACROLIMUS [Suspect]
     Active Substance: TACROLIMUS
  2. ACYCLOVIR [Concomitant]
     Active Substance: ACYCLOVIR
  3. AQUADEKS ORO [Concomitant]
  4. ASPIRIN LOW TAB 81 MG EC [Concomitant]
  5. BACTRIM DS [Concomitant]
     Active Substance: SULFAMETHOXAZOLE\TRIMETHOPRIM
  6. CELLCEPT [Concomitant]
     Active Substance: MYCOPHENOLATE MOFETIL
  7. ERGOCALCIFER CAP 50000UNT [Concomitant]
  8. MAGNESIUM-OX TAB 400MG [Concomitant]
  9. MELATONIN TAB 5MG [Concomitant]
  10. MULTIPLE VIT TAB [Concomitant]
  11. NYSTATIN SUS 100000 [Concomitant]
  12. PEPCID TAB 20MG [Concomitant]
  13. ZOFRAN TAB 8MG [Concomitant]

REACTIONS (1)
  - Biopsy liver [None]
